FAERS Safety Report 16347096 (Version 1)
Quarter: 2019Q3

REPORT INFORMATION
  Report Type: Spontaneous
  Country: US (occurrence: US)
  Receive Date: 20190522
  Receipt Date: 20190522
  Transmission Date: 20191004
  Serious: Yes (Life-Threatening, Hospitalization)
  Sender: FDA-Public Use
  Company Number: None

PATIENT
  Age: 18 Year
  Sex: Female

DRUGS (3)
  1. SYMBICORT [Concomitant]
     Active Substance: BUDESONIDE\FORMOTEROL FUMARATE DIHYDRATE
  2. ATIVAN [Suspect]
     Active Substance: LORAZEPAM
     Indication: ASTHMA
     Route: 042
     Dates: start: 20190519, end: 20190520
  3. ATIVAN [Suspect]
     Active Substance: LORAZEPAM
     Indication: ANXIETY
     Route: 042
     Dates: start: 20190519, end: 20190520

REACTIONS (3)
  - Paradoxical drug reaction [None]
  - Brain injury [None]
  - Oxygen saturation decreased [None]

NARRATIVE: CASE EVENT DATE: 20190519
